FAERS Safety Report 6279381-2 (Version None)
Quarter: 2009Q3

REPORT INFORMATION
  Report Type: 
  Country: None (occurrence: None)
  Receive Date: 20090723
  Receipt Date: 20090717
  Transmission Date: 20100115
  Serious: Yes (Death)
  Sender: FDA-Public Use
  Company Number: US-GILEAD-2009-0022647

PATIENT
  Sex: Female
  Weight: 63.56 kg

DRUGS (15)
  1. LETAIRIS [Suspect]
     Indication: PULMONARY ARTERIAL HYPERTENSION
     Route: 048
     Dates: start: 20090504, end: 20090529
  2. FUROSEMIDE [Concomitant]
  3. PRILOSEC [Concomitant]
  4. DETROL LA [Concomitant]
  5. MOTRIN [Concomitant]
  6. POTASSIUM CHLORIDE [Concomitant]
  7. SYNTHROID [Concomitant]
  8. HYDROXYUREA [Concomitant]
  9. REVATIO [Concomitant]
  10. METOLAZONE [Concomitant]
  11. FOLIC ACID [Concomitant]
  12. VITAMIN B6 [Concomitant]
  13. LEXAPRO [Concomitant]
  14. MULTI-VITAMINS [Concomitant]
  15. VYTORIN [Concomitant]

REACTIONS (2)
  - INTERSTITIAL LUNG DISEASE [None]
  - PULMONARY ARTERIAL HYPERTENSION [None]
